FAERS Safety Report 7455907-8 (Version None)
Quarter: 2011Q2

REPORT INFORMATION
  Report Type: 
  Country: None (occurrence: None)
  Receive Date: 20110503
  Receipt Date: 20110425
  Transmission Date: 20111010
  Serious: Yes (Other)
  Sender: FDA-Public Use
  Company Number: B0716703A

PATIENT
  Age: 41 Year
  Sex: Female

DRUGS (1)
  1. ZYNTABAC [Suspect]
     Indication: SMOKING CESSATION THERAPY
     Route: 048
     Dates: start: 20110129, end: 20110131

REACTIONS (3)
  - CHEST DISCOMFORT [None]
  - HYPOAESTHESIA ORAL [None]
  - TACHYCARDIA [None]
